FAERS Safety Report 4983128-7 (Version None)
Quarter: 2006Q2

REPORT INFORMATION
  Report Type: 
  Country: None (occurrence: None)
  Receive Date: 20060419
  Receipt Date: 20060410
  Transmission Date: 20061013
  Serious: Yes (Other)
  Sender: FDA-Public Use
  Company Number: 2006050391

PATIENT
  Age: 40 Year
  Sex: Female

DRUGS (1)
  1. LYRICA [Suspect]
     Indication: NEURALGIA
     Dosage: 300 MG (150 MG, BID), ORAL
     Route: 048

REACTIONS (5)
  - ANXIETY [None]
  - DYSPNOEA [None]
  - NIGHTMARE [None]
  - PANIC ATTACK [None]
  - TACHYCARDIA [None]
